FAERS Safety Report 8175803-0 (Version None)
Quarter: 2012Q1

REPORT INFORMATION
  Report Type: 
  Country: None (occurrence: None)
  Receive Date: 20120228
  Receipt Date: 20120217
  Transmission Date: 20120608
  Serious: Yes (Disabling, Other)
  Sender: FDA-Public Use
  Company Number: AUR-APL-2012-01055

PATIENT
  Age: 50 Year
  Sex: Female
  Weight: 58.5 kg

DRUGS (6)
  1. GABAPENTIN [Suspect]
     Indication: PRODUCT USED FOR UNKNOWN INDICATION
     Dosage: (1200 MG, IN NOON), UNKNOWN
     Dates: start: 19960301
  2. DEPAKOTE [Suspect]
     Indication: CONVULSION
     Dosage: 500 MG (250 MG, 2 IN 1 D), UNKNOWN
     Dates: start: 20111027, end: 20111128
  3. SAVELLA (MILNACIPROAN HYDROCHLORIDE) [Concomitant]
  4. KEPRA (LEVETIRACETAM) [Suspect]
     Indication: CONVULSION
     Dosage: 500 MG (250 MG, 2 IN 1 D), UNKNOWN
     Dates: start: 20111006, end: 20111001
  5. VALPROIC ACID [Suspect]
     Indication: CONVULSION
  6. SOMA [Concomitant]

REACTIONS (2)
  - DRUG INEFFECTIVE [None]
  - CONVULSION [None]
